FAERS Safety Report 18104086 (Version 1)
Quarter: 2020Q3

REPORT INFORMATION
  Report Type: Spontaneous
  Country: US (occurrence: US)
  Receive Date: 20200802
  Receipt Date: 20200802
  Transmission Date: 20201103
  Serious: Yes (Hospitalization)
  Sender: FDA-Public Use
  Company Number: None

PATIENT
  Age: 71 Year
  Sex: Male

DRUGS (1)
  1. RIFAXIMIN. [Suspect]
     Active Substance: RIFAXIMIN
     Indication: HEPATIC ENCEPHALOPATHY PROPHYLAXIS
     Route: 048
     Dates: start: 20181214

REACTIONS (2)
  - Hepatic encephalopathy [None]
  - Treatment noncompliance [None]

NARRATIVE: CASE EVENT DATE: 20200718
